FAERS Safety Report 4414846-7 (Version None)
Quarter: 2004Q3

REPORT INFORMATION
  Report Type: 
  Country: None (occurrence: None)
  Receive Date: 20040804
  Receipt Date: 20031203
  Transmission Date: 20050211
  Serious: No
  Sender: FDA-Public Use
  Company Number: US-BRISTOL-MYERS SQUIBB COMPANY-12448718

PATIENT
  Age: 59 Year
  Sex: Female
  Weight: 110 kg

DRUGS (5)
  1. GLUCOVANCE [Suspect]
     Indication: DIABETES MELLITUS
     Dosage: DOSAGE FORM= 5/500
     Route: 048
     Dates: start: 20031128
  2. CRESTOR [Concomitant]
  3. PENTOXIFYLLINE [Concomitant]
  4. ZESTORETIC [Concomitant]
  5. ASPIRIN [Concomitant]

REACTIONS (2)
  - DYSPEPSIA [None]
  - NAUSEA [None]
